FAERS Safety Report 8417534-5 (Version None)
Quarter: 2012Q2

REPORT INFORMATION
  Report Type: 
  Country: None (occurrence: None)
  Receive Date: 20120606
  Receipt Date: 20120524
  Transmission Date: 20120825
  Serious: Yes (Hospitalization)
  Sender: FDA-Public Use
  Company Number: US-MYLANLABS-2012S1011192

PATIENT
  Age: 62 Year
  Sex: Female

DRUGS (8)
  1. ACETAMINOPHEN [Suspect]
     Indication: SUICIDE ATTEMPT
  2. CLONIDINE [Suspect]
  3. CLONIDINE [Suspect]
  4. FUROSEMIDE [Suspect]
     Indication: SUICIDE ATTEMPT
  5. TAMOXIFEN CITRATE [Concomitant]
     Route: 065
  6. FUROSEMIDE [Suspect]
     Dosage: 40 MG DAILY
  7. CLONIDINE [Suspect]
     Indication: SUICIDE ATTEMPT
  8. CLONIDINE [Suspect]
     Indication: HOT FLUSH

REACTIONS (6)
  - SUICIDE ATTEMPT [None]
  - INTENTIONAL OVERDOSE [None]
  - HYPOTHERMIA [None]
  - HYPOTENSION [None]
  - LOSS OF CONSCIOUSNESS [None]
  - BRADYCARDIA [None]
